APPROVED DRUG PRODUCT: FOSFOMYCIN TROMETHAMINE
Active Ingredient: FOSFOMYCIN TROMETHAMINE
Strength: EQ 3GM BASE/PACKET
Dosage Form/Route: FOR SOLUTION;ORAL
Application: A216600 | Product #001 | TE Code: AA
Applicant: AMNEAL EU LTD
Approved: Mar 25, 2024 | RLD: No | RS: No | Type: RX